FAERS Safety Report 19235986 (Version 6)
Quarter: 2021Q3

REPORT INFORMATION
  Report Type: Report from Study
  Country: US (occurrence: US)
  Receive Date: 20210510
  Receipt Date: 20210902
  Transmission Date: 20211014
  Serious: Yes (Other)
  Sender: FDA-Public Use
  Company Number: US-CLOVIS ONCOLOGY-CLO-2021-000718

PATIENT
  Age: 68 Year
  Sex: Female

DRUGS (2)
  1. ZYRTEC [Concomitant]
     Active Substance: CETIRIZINE HYDROCHLORIDE
     Indication: SEASONAL ALLERGY
     Dosage: OCCASIONALLY
  2. RUBRACA [Suspect]
     Active Substance: RUCAPARIB CAMSYLATE
     Indication: OVARIAN CANCER
     Dosage: 500 MILLIGRAM, BID
     Route: 048
     Dates: start: 20210425, end: 20210720

REACTIONS (15)
  - Asthenia [Unknown]
  - Faeces discoloured [Unknown]
  - Dysgeusia [Not Recovered/Not Resolved]
  - Abdominal pain [Unknown]
  - Neuropathy peripheral [Recovering/Resolving]
  - Flatulence [Not Recovered/Not Resolved]
  - Constipation [Recovered/Resolved]
  - Abdominal distension [Not Recovered/Not Resolved]
  - Photosensitivity reaction [Unknown]
  - Skin burning sensation [Unknown]
  - Intestinal mass [Unknown]
  - Fatigue [Not Recovered/Not Resolved]
  - Vomiting [Unknown]
  - Platelet count decreased [Not Recovered/Not Resolved]
  - Product dose omission in error [Unknown]

NARRATIVE: CASE EVENT DATE: 20210504
